FAERS Safety Report 7069508-7 (Version None)
Quarter: 2010Q4

REPORT INFORMATION
  Report Type: 
  Country: None (occurrence: None)
  Receive Date: 20101028
  Receipt Date: 20100120
  Transmission Date: 20110411
  Serious: No
  Sender: FDA-Public Use
  Company Number: US-WYE-H13116910

PATIENT
  Sex: Male

DRUGS (3)
  1. AMIODARONE [Suspect]
  2. COUMADIN [Concomitant]
  3. MULTAQ [Concomitant]

REACTIONS (1)
  - NONSPECIFIC REACTION [None]
